FAERS Safety Report 7245296-6 (Version None)
Quarter: 2011Q1

REPORT INFORMATION
  Report Type: 
  Country: None (occurrence: None)
  Receive Date: 20110126
  Receipt Date: 20110119
  Transmission Date: 20110831
  Serious: Yes (Hospitalization)
  Sender: FDA-Public Use
  Company Number: JP-ROCHE-685995

PATIENT
  Age: 38 Year
  Sex: Male

DRUGS (20)
  1. PREDNISOLONE [Concomitant]
  2. WARFARIN [Concomitant]
     Route: 048
  3. WARFARIN [Concomitant]
     Route: 048
  4. TACROLIMUS [Concomitant]
  5. CELLCEPT [Suspect]
     Dosage: DOSE DECREASED
     Route: 048
     Dates: start: 20080101, end: 20080101
  6. PREDNISOLONE [Concomitant]
  7. PREDNISOLONE [Concomitant]
  8. ANTICOAGULANTS [Concomitant]
     Route: 042
  9. WARFARIN [Concomitant]
     Route: 048
     Dates: start: 20070101
  10. METHYLPREDNISOLONE SODIUM SUCCINATE [Concomitant]
     Route: 041
     Dates: start: 20080601, end: 20080601
  11. CELLCEPT [Suspect]
     Route: 048
     Dates: start: 20070101, end: 20070101
  12. ANTICOAGULANTS [Concomitant]
     Route: 042
  13. TACROLIMUS [Concomitant]
     Dosage: DOSE DECREASED
     Dates: start: 20070101
  14. PREDNISOLONE [Concomitant]
  15. PREDNISOLONE [Concomitant]
  16. ASPIRIN [Concomitant]
     Route: 048
     Dates: start: 20070101
  17. CELLCEPT [Suspect]
     Dosage: DOSE DECREASED
     Route: 048
     Dates: start: 20070101
  18. CELLCEPT [Suspect]
     Dosage: DOSE DECREASED
     Route: 048
  19. PREDNISOLONE [Concomitant]
  20. BASILIXIMAB [Concomitant]
     Route: 041

REACTIONS (1)
  - POLYOMAVIRUS-ASSOCIATED NEPHROPATHY [None]
